FAERS Safety Report 4810527-6 (Version None)
Quarter: 2005Q4

REPORT INFORMATION
  Report Type: 
  Country: None (occurrence: None)
  Receive Date: 20051025
  Receipt Date: 20051025
  Transmission Date: 20060501
  Serious: Yes (Other)
  Sender: FDA-Public Use
  Company Number: None

PATIENT
  Age: 73 Year
  Sex: Male
  Weight: 114.3 kg

DRUGS (12)
  1. SIMVASTATIN [Suspect]
  2. METOPROLOL TARTRATE [Concomitant]
  3. HYDROCHLOROTHIAZIDE [Concomitant]
  4. LISINOPRIL [Concomitant]
  5. FLUVASTATIN [Concomitant]
  6. NITROGLYCERIN [Concomitant]
  7. SIMVASTATIN [Concomitant]
  8. ALBUTEROL [Concomitant]
  9. AMLODIPINE BESYLATE [Concomitant]
  10. CALCIUM 500MG/VITAMIN D [Concomitant]
  11. CLONIDINE [Concomitant]
  12. GLYBURIDE [Concomitant]

REACTIONS (2)
  - ASTHENIA [None]
  - MYALGIA [None]
